FAERS Safety Report 6696944-0 (Version None)
Quarter: 2010Q2

REPORT INFORMATION
  Report Type: 
  Country: None (occurrence: None)
  Receive Date: 20100420
  Receipt Date: 20100304
  Transmission Date: 20101027
  Serious: Yes (Life-Threatening, Hospitalization)
  Sender: FDA-Public Use
  Company Number: SPV1-2010-00233

PATIENT
  Age: 14 Year
  Sex: Male
  Weight: 50.3 kg

DRUGS (2)
  1. LIALDA [Suspect]
     Indication: COLITIS ULCERATIVE
     Dosage: 4.8 G, 1X/DAY:QD, ORAL
     Route: 048
     Dates: start: 20091229, end: 20100205
  2. BUDESONIDE [Concomitant]

REACTIONS (1)
  - PERICARDITIS [None]
